FAERS Safety Report 9916375 (Version 1)
Quarter: 2014Q1

REPORT INFORMATION
  Report Type: Spontaneous
  Country: US (occurrence: None)
  Receive Date: 20140220
  Receipt Date: 20140220
  Transmission Date: 20141002
  Serious: No
  Sender: FDA-Public Use
  Company Number: None

PATIENT
  Age: 55 Year
  Sex: Female

DRUGS (3)
  1. TECFIDERA [Suspect]
     Indication: MULTIPLE SCLEROSIS
     Dosage: 1 PILL
     Route: 048
     Dates: start: 20140207, end: 20140219
  2. PRAVASTATIN [Concomitant]
  3. TOPROL XL [Concomitant]

REACTIONS (1)
  - Headache [None]
